FAERS Safety Report 9402919 (Version 1)
Quarter: 2013Q3

REPORT INFORMATION
  Report Type: Spontaneous
  Country: JP (occurrence: JP)
  Receive Date: 20130716
  Receipt Date: 20130716
  Transmission Date: 20140515
  Serious: Yes (Other)
  Sender: FDA-Public Use
  Company Number: PHHY2013JP074258

PATIENT
  Age: 82 Year
  Sex: Female

DRUGS (1)
  1. ZOMETA [Suspect]
     Indication: PLASMA CELL MYELOMA
     Dosage: 4 MG, MONTHLY
     Route: 041
     Dates: start: 200702, end: 200803

REACTIONS (12)
  - Osteonecrosis of jaw [Unknown]
  - Erythema [Unknown]
  - Swelling [Unknown]
  - Dental fistula [Recovering/Resolving]
  - Purulent discharge [Recovering/Resolving]
  - Decreased appetite [Recovered/Resolved]
  - Somnolence [Unknown]
  - Breath odour [Recovering/Resolving]
  - Tooth loss [Unknown]
  - Communication disorder [Recovering/Resolving]
  - Inflammation [Recovering/Resolving]
  - Exposed bone in jaw [Recovering/Resolving]
